FAERS Safety Report 5635792-7 (Version None)
Quarter: 2008Q1

REPORT INFORMATION
  Report Type: 
  Country: None (occurrence: None)
  Receive Date: 20080221
  Receipt Date: 20080214
  Transmission Date: 20080703
  Serious: Yes (Death, Other)
  Sender: FDA-Public Use
  Company Number: 083-C5013-08020863

PATIENT
  Age: 78 Year
  Sex: Male
  Weight: 74 kg

DRUGS (7)
  1. CC-5013 (LENALIDOMIDE) (CAPSULES) [Suspect]
     Indication: MULTIPLE MYELOMA
     Dosage: 25 MG,DAILY,ORAL
     Route: 048
     Dates: start: 20080123, end: 20080207
  2. DEXAMETHASONE TAB [Concomitant]
  3. LOW MOLECULAR WEIGHT HEPARIN (HEPARIN) [Concomitant]
  4. CIPROFLOXACIN [Concomitant]
  5. VALACYCLOVIR [Concomitant]
  6. ALLOPURINOL [Concomitant]
  7. INSULIN [Concomitant]

REACTIONS (6)
  - CARDIAC ARREST [None]
  - DIABETES MELLITUS INADEQUATE CONTROL [None]
  - DIABETIC KETOACIDOSIS [None]
  - LEUKOPENIA [None]
  - LUNG INFILTRATION [None]
  - THROMBOCYTOPENIA [None]
